FAERS Safety Report 11705624 (Version 4)
Quarter: 2015Q4

REPORT INFORMATION
  Report Type: Spontaneous
  Country: ES (occurrence: ES)
  Receive Date: 20151106
  Receipt Date: 20151214
  Transmission Date: 20160304
  Serious: Yes (Death, Hospitalization, Other)
  Sender: FDA-Public Use
  Company Number: ES-GILEAD-2015-0180500

PATIENT
  Age: 78 Year
  Sex: Female

DRUGS (4)
  1. FUROSEMIDE. [Concomitant]
     Active Substance: FUROSEMIDE
     Indication: OSTEOARTHRITIS
     Dosage: 40 MG, UNK
     Route: 065
  2. HARVONI [Suspect]
     Active Substance: LEDIPASVIR\SOFOSBUVIR
     Indication: HEPATITIS C
     Dosage: UNK
     Route: 065
     Dates: start: 201506, end: 2015
  3. ALDACTONE [Concomitant]
     Active Substance: SPIRONOLACTONE
     Indication: OSTEOARTHRITIS
     Dosage: 100 MG, UNK
     Route: 065
  4. PREDNISONE. [Concomitant]
     Active Substance: PREDNISONE
     Indication: OSTEOARTHRITIS
     Dosage: 2.5 MG, UNK
     Route: 065

REACTIONS (7)
  - Pruritus [Not Recovered/Not Resolved]
  - Hepatocellular carcinoma [Fatal]
  - Asthenia [Not Recovered/Not Resolved]
  - Blood bilirubin increased [Unknown]
  - General physical health deterioration [Not Recovered/Not Resolved]
  - Hepatic failure [Unknown]
  - Transaminases increased [Unknown]

NARRATIVE: CASE EVENT DATE: 2015
